FAERS Safety Report 7187186-3 (Version None)
Quarter: 2010Q4

REPORT INFORMATION
  Report Type: 
  Country: None (occurrence: None)
  Receive Date: 20101222
  Receipt Date: 20101217
  Transmission Date: 20110411
  Serious: Yes (Other)
  Sender: FDA-Public Use
  Company Number: US-AMGEN-USASP2010008566

PATIENT

DRUGS (1)
  1. ENBREL [Suspect]
     Indication: PSORIASIS
     Dosage: 50 MG, 2 TIMES/WK
     Dates: start: 20101209

REACTIONS (6)
  - COLD SWEAT [None]
  - DISTURBANCE IN ATTENTION [None]
  - MENTAL IMPAIRMENT [None]
  - MUSCULOSKELETAL STIFFNESS [None]
  - NAUSEA [None]
  - SPEECH DISORDER [None]
